FAERS Safety Report 11647852 (Version 1)
Quarter: 2015Q4

REPORT INFORMATION
  Report Type: Spontaneous
  Country: US (occurrence: None)
  Receive Date: 20151020
  Receipt Date: 20151020
  Transmission Date: 20160304
  Serious: Yes (Hospitalization)
  Sender: FDA-Public Use
  Company Number: None

PATIENT
  Age: 50 Year
  Sex: Female
  Weight: 88.45 kg

DRUGS (20)
  1. ALBUTEROL. [Concomitant]
     Active Substance: ALBUTEROL
  2. E.KETOCONAZOLE [Concomitant]
  3. LACTOBACILLUS [Concomitant]
     Active Substance: LACTOBACILLUS ACIDOPHILUS
  4. OXYCODONE [Concomitant]
     Active Substance: OXYCODONE
  5. INSULIN GLARGIN [Concomitant]
  6. MONTELUKAST [Concomitant]
     Active Substance: MONTELUKAST SODIUM
  7. INSULIN ASPART [Concomitant]
     Active Substance: INSULIN ASPART
  8. PANTOPRAZOLE [Concomitant]
     Active Substance: PANTOPRAZOLE SODIUM
  9. PHENAZOPYRIDINE. [Concomitant]
     Active Substance: PHENAZOPYRIDINE
  10. SODIUM CHLORIDE. [Concomitant]
     Active Substance: SODIUM CHLORIDE
  11. LOSARTAN. [Concomitant]
     Active Substance: LOSARTAN
  12. PROPANOLOL [Concomitant]
     Active Substance: PROPRANOLOL HYDROCHLORIDE
  13. SUMATRIPTAN. [Concomitant]
     Active Substance: SUMATRIPTAN
  14. RIBAVIRIN 600 MG [Suspect]
     Active Substance: RIBAVIRIN
     Indication: HEPATITIS C
     Dosage: 400/200 MG
     Route: 048
     Dates: start: 20150813
  15. FLUTICASONE [Concomitant]
     Active Substance: FLUTICASONE\FLUTICASONE PROPIONATE
  16. GABAPENTIN. [Concomitant]
     Active Substance: GABAPENTIN
  17. RHAMNOUS [Concomitant]
  18. ONDANSETRON [Concomitant]
     Active Substance: ONDANSETRON
  19. VIEKIRA PAK [Suspect]
     Active Substance: DASABUVIR\OMBITASVIR\PARITAPREVIR\RITONAVIR
     Indication: HEPATITIS C
     Dosage: 12.5/75/50 MG; BID
     Route: 048
     Dates: start: 20150813
  20. RIFAXIMIN [Concomitant]
     Active Substance: RIFAXIMIN

REACTIONS (16)
  - Dehydration [None]
  - Hypophagia [None]
  - Abdominal pain [None]
  - Escherichia test positive [None]
  - Headache [None]
  - Diarrhoea [None]
  - Haematemesis [None]
  - Vulvovaginal mycotic infection [None]
  - Dizziness [None]
  - Urinary tract infection [None]
  - Chest pain [None]
  - Portal hypertension [None]
  - Faeces discoloured [None]
  - Acute kidney injury [None]
  - Contusion [None]
  - Epistaxis [None]

NARRATIVE: CASE EVENT DATE: 20150820
